FAERS Safety Report 6769849-4 (Version None)
Quarter: 2010Q2

REPORT INFORMATION
  Report Type: 
  Country: None (occurrence: None)
  Receive Date: 20100615
  Receipt Date: 20100611
  Transmission Date: 20101027
  Serious: Yes (Other)
  Sender: FDA-Public Use
  Company Number: A0864473A

PATIENT
  Age: 40 Year
  Sex: Female

DRUGS (1)
  1. NICODERM CQ [Suspect]
     Indication: SMOKING CESSATION THERAPY
     Route: 062
     Dates: start: 20100201

REACTIONS (9)
  - APPLICATION SITE ANAESTHESIA [None]
  - APPLICATION SITE DISCOMFORT [None]
  - APPLICATION SITE ERYTHEMA [None]
  - APPLICATION SITE PAIN [None]
  - APPLICATION SITE PARAESTHESIA [None]
  - APPLICATION SITE PRURITUS [None]
  - BACK PAIN [None]
  - CARDIAC FLUTTER [None]
  - MYOCARDIAL INFARCTION [None]
